FAERS Safety Report 6857296-6 (Version None)
Quarter: 2010Q3

REPORT INFORMATION
  Report Type: 
  Country: None (occurrence: None)
  Receive Date: 20100719
  Receipt Date: 20100708
  Transmission Date: 20110219
  Serious: Yes (Hospitalization)
  Sender: FDA-Public Use
  Company Number: FR-PFIZER INC-2010085223

PATIENT
  Age: 76 Year
  Sex: Male

DRUGS (8)
  1. ZYVOX [Suspect]
     Indication: STAPHYLOCOCCAL SEPSIS
     Dosage: 600 MG, 2X/DAY
     Route: 048
     Dates: start: 20080509, end: 20080527
  2. NEXIUM [Concomitant]
     Dosage: 20 MG, 1X/DAY
  3. CARDENSIEL [Concomitant]
     Dosage: 2.5 MG, 1X/DAY
  4. KARDEGIC [Concomitant]
     Dosage: 75 MG, 1X/DAY
  5. PREVISCAN [Concomitant]
  6. FORLAX [Concomitant]
     Indication: CONSTIPATION
     Dosage: UNK
  7. PARACETAMOL [Concomitant]
     Indication: PAIN
     Dosage: 500 MG, AS NEEDED
  8. TARDYFERON [Concomitant]
     Dosage: UNK

REACTIONS (2)
  - OTOTOXICITY [None]
  - PANCYTOPENIA [None]
